FAERS Safety Report 7799518-3 (Version None)
Quarter: 2011Q4

REPORT INFORMATION
  Report Type: 
  Country: None (occurrence: None)
  Receive Date: 20111006
  Receipt Date: 20110721
  Transmission Date: 20120403
  Serious: Yes (Life-Threatening, Hospitalization, Other)
  Sender: FDA-Public Use
  Company Number: DE-UCBSA-037554

PATIENT
  Age: 39 Year
  Sex: Female

DRUGS (4)
  1. KEPPRA [Suspect]
     Indication: EPILEPSY
     Route: 048
     Dates: start: 20110613
  2. VIMPAT [Suspect]
     Indication: EPILEPSY
     Route: 048
     Dates: start: 20110613
  3. BETASERON [Concomitant]
     Dosage: 8 MIO
     Route: 058
     Dates: start: 20010101
  4. BETASERON [Concomitant]
     Route: 058
     Dates: end: 20100101

REACTIONS (5)
  - HYPOXIA [None]
  - STATUS EPILEPTICUS [None]
  - ACUTE HEPATIC FAILURE [None]
  - RENAL FAILURE [None]
  - RHABDOMYOLYSIS [None]
